FAERS Safety Report 10575631 (Version 2)
Quarter: 2014Q4

REPORT INFORMATION
  Report Type: Spontaneous
  Country: US (occurrence: US)
  Receive Date: 20141111
  Receipt Date: 20141211
  Transmission Date: 20150529
  Serious: No
  Sender: FDA-Public Use
  Company Number: US-PFIZER INC-2014307551

PATIENT
  Age: 59 Year
  Sex: Male
  Weight: 77.98 kg

DRUGS (3)
  1. CIALIS [Concomitant]
     Active Substance: TADALAFIL
     Dosage: UNK
  2. CELEBREX [Suspect]
     Active Substance: CELECOXIB
     Indication: JOINT STIFFNESS
     Dosage: 200 MG, DAILY
  3. CELEBREX [Suspect]
     Active Substance: CELECOXIB
     Dosage: UNK

REACTIONS (1)
  - Prostatic disorder [Recovered/Resolved]

NARRATIVE: CASE EVENT DATE: 2014
